FAERS Safety Report 5168287-8 (Version None)
Quarter: 2006Q4

REPORT INFORMATION
  Report Type: 
  Country: None (occurrence: None)
  Receive Date: 20061208
  Receipt Date: 20061201
  Transmission Date: 20070319
  Serious: Yes (Death)
  Sender: FDA-Public Use
  Company Number: US-MERCK-0612USA00386

PATIENT
  Age: 57 Year
  Sex: Male

DRUGS (1)
  1. DECADRON [Suspect]
     Indication: NATURAL KILLER-CELL LYMPHOBLASTIC LYMPHOMA
     Route: 048

REACTIONS (4)
  - BONE MARROW DISORDER [None]
  - DEATH [None]
  - DRUG INEFFECTIVE [None]
  - NATURAL KILLER-CELL LYMPHOBLASTIC LYMPHOMA [None]
